FAERS Safety Report 26065055 (Version 1)
Quarter: 2025Q4

REPORT INFORMATION
  Report Type: Spontaneous
  Country: US (occurrence: US)
  Receive Date: 20251119
  Receipt Date: 20251119
  Transmission Date: 20260117
  Serious: No
  Sender: BAYER HEALTHCARE LLC
  Company Number: US-BAYER-2025A152461

PATIENT
  Age: 12 Year

DRUGS (1)
  1. MIRALAX [Suspect]
     Active Substance: POLYETHYLENE GLYCOL 3350
     Indication: Product used for unknown indication
     Dosage: HALF A CUP FROM THE CONTAINER, BID
     Route: 065

REACTIONS (2)
  - Product prescribing issue [Unknown]
  - Drug ineffective [Unknown]
